FAERS Safety Report 11445389 (Version 1)
Quarter: 2015Q3

REPORT INFORMATION
  Report Type: Spontaneous
  Country: US (occurrence: None)
  Receive Date: 20150901
  Receipt Date: 20150901
  Transmission Date: 20151125
  Serious: Yes (Other)
  Sender: FDA-Public Use
  Company Number: None

PATIENT
  Age: 63 Year
  Sex: Female
  Weight: 98.88 kg

DRUGS (21)
  1. HERCEPTIN [Suspect]
     Active Substance: TRASTUZUMAB
     Indication: PROGESTERONE RECEPTOR ASSAY POSITIVE
     Dosage: EVERY 3 WEEKS INTO A VEIN
     Dates: start: 20111003, end: 20150805
  2. OXYCODONE [Concomitant]
     Active Substance: OXYCODONE
  3. AMITRIPTYLINE [Concomitant]
     Active Substance: AMITRIPTYLINE
  4. MARIJUANA [Concomitant]
     Active Substance: CANNABIS SATIVA SUBSP. INDICA TOP
  5. TRASTUZUMAB [Suspect]
     Active Substance: TRASTUZUMAB
     Indication: HER-2 POSITIVE BREAST CANCER
     Route: 042
     Dates: start: 20111003, end: 20150805
  6. HERCEPTIN [Suspect]
     Active Substance: TRASTUZUMAB
     Indication: OESTROGEN RECEPTOR POSITIVE BREAST CANCER
     Dosage: EVERY 3 WEEKS INTO A VEIN
     Dates: start: 20111003, end: 20150805
  7. CLOBETASOL [Concomitant]
     Active Substance: CLOBETASOL
  8. TAXOTERE [Suspect]
     Active Substance: DOCETAXEL
     Indication: BREAST CANCER
     Dosage: EVERY  3 WEEKS  INTO THE VAIN
     Dates: start: 20111004, end: 20120314
  9. LIDOCAINE OINTMENT [Concomitant]
     Active Substance: LIDOCAINE
  10. DENOSUMAB [Concomitant]
     Active Substance: DENOSUMAB
  11. HERCEPTIN [Suspect]
     Active Substance: TRASTUZUMAB
     Indication: HER-2 POSITIVE BREAST CANCER
     Dosage: EVERY 3 WEEKS INTO A VEIN
     Dates: start: 20111003, end: 20150805
  12. IV MAINTAINENCE PERTUZUMAB [Concomitant]
  13. FENTANYL TRANSDERMAL SYSTEM [Concomitant]
     Active Substance: FENTANYL
  14. PROCHLORPERAZINE. [Concomitant]
     Active Substance: PROCHLORPERAZINE
  15. KETAMINE NASAL SPRAY [Concomitant]
  16. XANAX [Concomitant]
     Active Substance: ALPRAZOLAM
  17. DOCETAXEL. [Suspect]
     Active Substance: DOCETAXEL
     Indication: BREAST CANCER
     Route: 042
  18. HERCEPTIN [Suspect]
     Active Substance: TRASTUZUMAB
     Indication: BREAST CANCER
     Dosage: EVERY 3 WEEKS INTO A VEIN
     Dates: start: 20111003, end: 20150805
  19. METRONIDAZOLE. [Concomitant]
     Active Substance: METRONIDAZOLE
  20. BACLOFEN. [Concomitant]
     Active Substance: BACLOFEN
  21. VANCYCLOVIR 500MG AUROBINDO [Concomitant]
     Active Substance: VALACYCLOVIR HYDROCHLORIDE

REACTIONS (1)
  - Affect lability [None]

NARRATIVE: CASE EVENT DATE: 20110201
